FAERS Safety Report 19612163 (Version 1)
Quarter: 2021Q3

REPORT INFORMATION
  Report Type: Spontaneous
  Country: FR (occurrence: FR)
  Receive Date: 20210727
  Receipt Date: 20210727
  Transmission Date: 20211014
  Serious: Yes (Other)
  Sender: FDA-Public Use
  Company Number: FR-AUROBINDO-AUR-APL-2021-031656

PATIENT
  Age: 31 Year
  Sex: Female

DRUGS (7)
  1. OXYCODONE [Suspect]
     Active Substance: OXYCODONE
     Indication: PRODUCT USED FOR UNKNOWN INDICATION
     Dosage: 60 MILLIGRAM, AS NECESSARY (1 TAB (10 MG) 6 TIMES / DAY IF NEEDED)
     Route: 048
     Dates: start: 20200502, end: 20200502
  2. CANNABIS SATIVA [Suspect]
     Active Substance: CANNABIS SATIVA FLOWERING TOP
     Indication: PRODUCT USED FOR UNKNOWN INDICATION
     Dosage: UNK (SEVERAL TIMES / WEEK)
     Route: 055
  3. OXYCODONE [Suspect]
     Active Substance: OXYCODONE
     Dosage: 20 MILLIGRAM, ONCE A DAY (1 TAB (10 MG) TWICE / DAY)
     Route: 048
     Dates: start: 20200503, end: 20200520
  4. OXYCODONE [Suspect]
     Active Substance: OXYCODONE
     Dosage: 40 MILLIGRAM, ONCE A DAY (1 TAB (20 MG) 2 TIMES / DAY)
     Route: 048
     Dates: start: 20200502, end: 20200502
  5. DIAMORPHINE [Suspect]
     Active Substance: DIAMORPHINE
     Indication: PRODUCT USED FOR UNKNOWN INDICATION
     Dosage: 1 GRAM, FOUR TIMES/DAY
     Route: 045
     Dates: start: 2005
  6. SUBUTEX [Suspect]
     Active Substance: BUPRENORPHINE HYDROCHLORIDE
     Indication: PRODUCT USED FOR UNKNOWN INDICATION
     Dosage: 10 MILLIGRAM
     Route: 042
     Dates: start: 20200430
  7. OXYCODONE [Suspect]
     Active Substance: OXYCODONE
     Dosage: 30 MILLIGRAM, AS NECESSARY (1 TAB (5MG) 6 TIMES / DAY IF NEEDED)
     Route: 048
     Dates: start: 20200503, end: 20200520

REACTIONS (4)
  - Overdose [Recovered/Resolved]
  - Drug abuse [Not Recovered/Not Resolved]
  - Sedation [Recovered/Resolved]
  - Toxicity to various agents [Recovered/Resolved]

NARRATIVE: CASE EVENT DATE: 20200502
